FAERS Safety Report 9729667 (Version 1)
Quarter: 2013Q4

REPORT INFORMATION
  Report Type: Spontaneous
  Country: US (occurrence: US)
  Receive Date: 20131204
  Receipt Date: 20131204
  Transmission Date: 20140711
  Serious: No
  Sender: FDA-Public Use
  Company Number: US-GILEAD-2009-0020887

PATIENT
  Sex: Male
  Weight: 127.91 kg

DRUGS (20)
  1. LETAIRIS [Suspect]
     Indication: PULMONARY ARTERIAL HYPERTENSION
     Route: 048
     Dates: start: 20090303
  2. VIAGRA [Concomitant]
  3. COUMADIN [Concomitant]
  4. FUROSEMIDE [Concomitant]
  5. METOPROLOL [Concomitant]
  6. LISINOPRIL [Concomitant]
  7. SIMVASTATIN [Concomitant]
  8. IPRATROPIUM BROMIDE [Concomitant]
  9. FORMOTEROL FUMARATE [Concomitant]
  10. FLEXERIL [Concomitant]
  11. TIZANIDINE [Concomitant]
  12. SUCRALFATE [Concomitant]
  13. LORATADINE [Concomitant]
  14. DIPHENOXYLATE/ATROPINE SULFATE [Concomitant]
  15. METOCLOPRAMIDE [Concomitant]
  16. LEVITHYROXINE [Concomitant]
  17. LOPERAMIDE [Concomitant]
  18. PROVIGIL [Concomitant]
  19. MORPHINE SOLUBLE [Concomitant]
  20. FOLIC ACID [Concomitant]

REACTIONS (2)
  - Chest pain [Unknown]
  - Dyspnoea [Unknown]
